FAERS Safety Report 9844852 (Version 2)
Quarter: 2014Q1

REPORT INFORMATION
  Report Type: Spontaneous
  Country: US (occurrence: US)
  Receive Date: 20140127
  Receipt Date: 20140127
  Transmission Date: 20141002
  Serious: Yes (Disabling)
  Sender: FDA-Public Use
  Company Number: US-GE HEALTHCARE MEDICAL DIAGNOSTICS-OSCN-PR-0903S-0151

PATIENT
  Age: 63 Year
  Sex: Female

DRUGS (4)
  1. OMNISCAN [Suspect]
     Indication: MENTAL STATUS CHANGES
     Dates: start: 20060713, end: 20060713
  2. IRON [Concomitant]
  3. ARANESP [Concomitant]
  4. INSULIN [Concomitant]

REACTIONS (1)
  - Nephrogenic systemic fibrosis [Not Recovered/Not Resolved]
